FAERS Safety Report 8534460-1 (Version None)
Quarter: 2012Q3

REPORT INFORMATION
  Report Type: 
  Country: None (occurrence: None)
  Receive Date: 20120724
  Receipt Date: 20120717
  Transmission Date: 20120928
  Serious: Yes (Hospitalization, Other)
  Sender: FDA-Public Use
  Company Number: US-UCBSA-060959

PATIENT
  Age: 22 Year
  Sex: Male
  Weight: 60 kg

DRUGS (2)
  1. CIMZIA [Suspect]
     Indication: CROHN'S DISEASE
     Route: 058
     Dates: start: 20120416, end: 20120516
  2. HUMIRA [Suspect]
     Indication: CROHN'S DISEASE
     Dates: start: 20111212, end: 20120524

REACTIONS (3)
  - ARTHRITIS [None]
  - PYREXIA [None]
  - ABASIA [None]
